FAERS Safety Report 13725522 (Version 1)
Quarter: 2017Q3

REPORT INFORMATION
  Report Type: Spontaneous
  Country: JP (occurrence: JP)
  Receive Date: 20170707
  Receipt Date: 20170707
  Transmission Date: 20171127
  Serious: Yes (Death, Other)
  Sender: FDA-Public Use
  Company Number: JP-B.I. PHARMACEUTICALS,INC./RIDGEFIELD-2017-BI-037787

PATIENT
  Age: 72 Year
  Sex: Male

DRUGS (1)
  1. PRAZAXA [Suspect]
     Active Substance: DABIGATRAN ETEXILATE MESYLATE
     Indication: ATRIAL FIBRILLATION
     Route: 065

REACTIONS (6)
  - Pulmonary embolism [Fatal]
  - Aphasia [Unknown]
  - Cerebral vasoconstriction [Unknown]
  - Endocarditis [Unknown]
  - Hemiparesis [Unknown]
  - Activated partial thromboplastin time prolonged [Unknown]
